FAERS Safety Report 4962487-5 (Version None)
Quarter: 2006Q1

REPORT INFORMATION
  Report Type: 
  Country: None (occurrence: None)
  Receive Date: 20060208
  Receipt Date: 20051019
  Transmission Date: 20060701
  Serious: Yes (Hospitalization, Disabling)
  Sender: FDA-Public Use
  Company Number: DSA_60529_2005

PATIENT
  Age: 15 Year
  Sex: Female
  Weight: 108.8633 kg

DRUGS (3)
  1. MIGRANAL [Suspect]
     Indication: MIGRAINE
     Dosage: 1 DF ONCE
     Route: 045
     Dates: start: 20051019, end: 20051019
  2. TOPAMAX [Suspect]
     Indication: MIGRAINE
     Dosage: 1 DF ONCE IN
     Route: 045
     Dates: start: 20051001
  3. TOPAMAX [Concomitant]

REACTIONS (3)
  - DRUG INEFFECTIVE [None]
  - NAUSEA [None]
  - PHARMACEUTICAL PRODUCT COMPLAINT [None]
